FAERS Safety Report 5283571-5 (Version None)
Quarter: 2007Q1

REPORT INFORMATION
  Report Type: 
  Country: None (occurrence: None)
  Receive Date: 20070329
  Receipt Date: 20070329
  Transmission Date: 20070707
  Serious: Yes (Life-Threatening, Hospitalization)
  Sender: FDA-Public Use
  Company Number: None

PATIENT
  Age: 20 Year
  Sex: Female
  Weight: 50.35 kg

DRUGS (1)
  1. ACETAMINOPHEN [Suspect]
     Indication: TOOTH ABSCESS
     Dosage: 500- 2500 MG Q 30 MIN OR SO PO
     Route: 048
     Dates: start: 20070326, end: 20070327

REACTIONS (2)
  - NAUSEA [None]
  - VOMITING [None]
